FAERS Safety Report 7073182-3 (Version None)
Quarter: 2010Q4

REPORT INFORMATION
  Report Type: 
  Country: None (occurrence: None)
  Receive Date: 20101029
  Receipt Date: 20101020
  Transmission Date: 20110411
  Serious: Yes (Other)
  Sender: FDA-Public Use
  Company Number: B0679805A

PATIENT
  Age: 51 Year
  Sex: Female
  Weight: 76 kg

DRUGS (2)
  1. ORLISTAT [Suspect]
     Dosage: 60MG THREE TIMES PER DAY
     Route: 065
     Dates: start: 20100920, end: 20100922
  2. EFEROX [Concomitant]

REACTIONS (4)
  - ABDOMINAL PAIN [None]
  - GASTROINTESTINAL DISORDER [None]
  - HAEMATOCHEZIA [None]
  - SKIN SWELLING [None]
